FAERS Safety Report 5552820-8 (Version None)
Quarter: 2007Q4

REPORT INFORMATION
  Report Type: 
  Country: None (occurrence: None)
  Receive Date: 20071212
  Receipt Date: 20070626
  Transmission Date: 20080405
  Serious: No
  Sender: FDA-Public Use
  Company Number: US-AMGEN-KDL228939

PATIENT
  Sex: Female
  Weight: 64.5 kg

DRUGS (7)
  1. ENBREL [Suspect]
     Indication: RHEUMATOID ARTHRITIS
     Route: 058
     Dates: start: 20070607
  2. ENBREL [Suspect]
     Indication: POLYMYALGIA RHEUMATICA
  3. PLAQUENIL [Concomitant]
     Dates: start: 20030306
  4. FOSAMAX [Concomitant]
     Dates: start: 20070619
  5. BONIVA [Concomitant]
     Dates: start: 20050525, end: 20070619
  6. EVISTA [Concomitant]
     Dates: start: 20050525, end: 20070619
  7. FOLIC ACID [Concomitant]
     Dates: start: 20020326

REACTIONS (3)
  - NASOPHARYNGITIS [None]
  - PARANASAL SINUS HYPERSECRETION [None]
  - PNEUMONIA [None]
